FAERS Safety Report 5980963-3 (Version None)
Quarter: 2008Q4

REPORT INFORMATION
  Report Type: 
  Country: None (occurrence: None)
  Receive Date: 20081205
  Receipt Date: 20080827
  Transmission Date: 20090506
  Serious: No
  Sender: FDA-Public Use
  Company Number: A0743429A

PATIENT
  Age: 25 Year
  Sex: Male

DRUGS (1)
  1. COMMIT [Suspect]
     Route: 002
     Dates: start: 20080804

REACTIONS (3)
  - ANGER [None]
  - ANXIETY [None]
  - DRUG INEFFECTIVE [None]
